FAERS Safety Report 21421276 (Version 1)
Quarter: 2022Q4

REPORT INFORMATION
  Report Type: Spontaneous
  Country: US (occurrence: US)
  Receive Date: 20221007
  Receipt Date: 20221007
  Transmission Date: 20230113
  Serious: Yes (Hospitalization, Other)
  Sender: FDA-Public Use
  Company Number: US-AUROBINDO-AUR-APL-2022-041071

PATIENT
  Age: 57 Year
  Sex: Male

DRUGS (1)
  1. CLOZAPINE [Suspect]
     Active Substance: CLOZAPINE
     Indication: Product used for unknown indication
     Dosage: UNK
     Route: 065

REACTIONS (10)
  - Diabetic ketoacidosis [Unknown]
  - Type 2 diabetes mellitus [Unknown]
  - Schizophrenia [Unknown]
  - Chronic kidney disease [Unknown]
  - Cataract nuclear [Unknown]
  - Angina pectoris [Unknown]
  - Hyperkalaemia [Unknown]
  - Hyperlipidaemia [Unknown]
  - Asthma [Unknown]
  - Insulin therapy [Unknown]

NARRATIVE: CASE EVENT DATE: 20210316
